FAERS Safety Report 6741656-8 (Version None)
Quarter: 2010Q2

REPORT INFORMATION
  Report Type: 
  Country: None (occurrence: None)
  Receive Date: 20100526
  Receipt Date: 20100518
  Transmission Date: 20101027
  Serious: Yes (Other)
  Sender: FDA-Public Use
  Company Number: AU-AMGEN-QUU413905

PATIENT
  Sex: Female

DRUGS (2)
  1. ENBREL [Suspect]
     Indication: DRUG USE FOR UNKNOWN INDICATION
     Dosage: FOR APPROXIMATELY 6 YEARS, CEASED 9 WEEKS INTO THE PREGNANCY AND RESTARTED 10 DAYS AFTER THE BIRTH
  2. PREDNISONE TAB [Concomitant]
     Dosage: 30MG DAILY

REACTIONS (1)
  - PREMATURE BABY [None]
